FAERS Safety Report 11795508 (Version 1)
Quarter: 2015Q4

REPORT INFORMATION
  Report Type: Spontaneous
  Country: US (occurrence: US)
  Receive Date: 20151202
  Receipt Date: 20151202
  Transmission Date: 20160305
  Serious: Yes (Other)
  Sender: FDA-Public Use
  Company Number: PHHY2015US153971

PATIENT
  Age: 66 Year
  Sex: Female

DRUGS (1)
  1. AMANTADINE [Suspect]
     Active Substance: AMANTADINE
     Indication: PRODUCT USED FOR UNKNOWN INDICATION
     Dosage: UNK UNK, BID
     Route: 065

REACTIONS (4)
  - Blindness unilateral [Recovered/Resolved]
  - Condition aggravated [Unknown]
  - Corneal dystrophy [Recovered/Resolved]
  - Corneal oedema [Recovered/Resolved]
